FAERS Safety Report 4735489-1 (Version None)
Quarter: 2005Q3

REPORT INFORMATION
  Report Type: 
  Country: None (occurrence: None)
  Receive Date: 20050805
  Receipt Date: 20050512
  Transmission Date: 20060218
  Serious: Yes (Disabling)
  Sender: FDA-Public Use
  Company Number: 2005AP02830

PATIENT
  Age: 32210 Day
  Sex: Male
  Weight: 52.5 kg

DRUGS (16)
  1. OMEPRAZOLE [Suspect]
     Indication: PROPHYLAXIS AGAINST GASTROINTESTINAL ULCER
     Route: 048
     Dates: start: 20050319, end: 20050422
  2. OMEPRAZOLE [Suspect]
     Route: 042
     Dates: start: 20050312, end: 20050318
  3. ALOSITOL [Suspect]
     Route: 048
     Dates: start: 20010727, end: 20050311
  4. KREMEZIN [Concomitant]
     Route: 048
     Dates: end: 20050311
  5. SODIUM BICARBONATE [Concomitant]
     Route: 048
     Dates: end: 20050311
  6. KALIMATE [Concomitant]
     Route: 048
     Dates: end: 20050311
  7. SORBITOL [Concomitant]
     Route: 048
     Dates: end: 20050311
  8. ACINON [Concomitant]
     Route: 048
     Dates: end: 20050311
  9. URINORM [Concomitant]
     Route: 048
     Dates: end: 20050311
  10. ALOSENN [Concomitant]
     Route: 048
     Dates: end: 20050311
  11. COMELIAN [Concomitant]
     Route: 048
     Dates: end: 20050311
  12. RENIVACE [Concomitant]
     Route: 048
     Dates: end: 20050311
  13. DEPAS [Concomitant]
     Route: 048
     Dates: end: 20050311
  14. DIART [Concomitant]
     Route: 048
     Dates: end: 20050311
  15. FERRUM [Concomitant]
     Route: 048
     Dates: end: 20050311
  16. CELTECT [Concomitant]
     Route: 048
     Dates: end: 20050311

REACTIONS (4)
  - EMPHYSEMA [None]
  - INTERSTITIAL LUNG DISEASE [None]
  - PULMONARY CONGESTION [None]
  - PULMONARY FIBROSIS [None]
